FAERS Safety Report 11331287 (Version 1)
Quarter: 2015Q3

REPORT INFORMATION
  Report Type: Spontaneous
  Country: RO (occurrence: RO)
  Receive Date: 20150803
  Receipt Date: 20150803
  Transmission Date: 20151125
  Serious: Yes (Other)
  Sender: FDA-Public Use
  Company Number: RO-BAYER-2015-377885

PATIENT
  Age: 15 Year
  Sex: Female

DRUGS (1)
  1. JAYDESS [Suspect]
     Active Substance: LEVONORGESTREL
     Indication: MENOMETRORRHAGIA
     Dosage: 14 MCG/24HR, CONT
     Route: 015
     Dates: start: 20150105

REACTIONS (7)
  - Acne [Unknown]
  - Device dislocation [None]
  - Haemorrhagic cyst [Recovering/Resolving]
  - Serum ferritin decreased [Unknown]
  - Uterine haemorrhage [Recovering/Resolving]
  - Off label use of device [None]
  - Therapeutic response unexpected [None]

NARRATIVE: CASE EVENT DATE: 2015
